FAERS Safety Report 7747643-5 (Version None)
Quarter: 2011Q3

REPORT INFORMATION
  Report Type: 
  Country: None (occurrence: None)
  Receive Date: 20110909
  Receipt Date: 20110825
  Transmission Date: 20111222
  Serious: Yes (Hospitalization)
  Sender: FDA-Public Use
  Company Number: US-2011-10584

PATIENT
  Age: 53 Year
  Sex: Female

DRUGS (6)
  1. METHOCARBAMOL [Concomitant]
  2. ACETAMINOPHEN [Concomitant]
  3. OPC-41061 (TOLVAPTAN) TABLET, 15MG MILLIGRAM(S) [Suspect]
     Indication: CONGENITAL CYSTIC KIDNEY DISEASE
     Dosage: 60 MG MILLIGRAM(S), DAILY DOSE, ORAL
     Route: 048
     Dates: start: 20110323, end: 20110807
  4. DIOVAN [Concomitant]
  5. LUD NOS (INTRAULERINE CONTRACEPTIVE DEVICE) [Concomitant]
  6. GLUCOSAINE + CHONDROITIN (CHONDROITIN SULFATE, GLUCOSAMINE) [Concomitant]

REACTIONS (10)
  - PAIN [None]
  - INTRACRANIAL ANEURYSM [None]
  - CEREBELLAR INFARCTION [None]
  - ARTHRALGIA [None]
  - LYMPHOCYTE COUNT INCREASED [None]
  - RED BLOOD CELL COUNT DECREASED [None]
  - HAEMOGLOBIN DECREASED [None]
  - CEREBROVASCULAR ACCIDENT [None]
  - HAEMATOCRIT DECREASED [None]
  - BLOOD ALBUMIN DECREASED [None]
